FAERS Safety Report 17387047 (Version 1)
Quarter: 2020Q1

REPORT INFORMATION
  Report Type: Spontaneous
  Country: US (occurrence: US)
  Receive Date: 20200206
  Receipt Date: 20200206
  Transmission Date: 20200409
  Serious: Yes (Other)
  Sender: FDA-Public Use
  Company Number: US-INCYTE CORPORATION-2020IN001123

PATIENT

DRUGS (3)
  1. JAKAFI [Suspect]
     Active Substance: RUXOLITINIB
     Indication: ESSENTIAL THROMBOCYTHAEMIA
     Dosage: 5 MILLIGRAM
     Route: 065
     Dates: start: 201905, end: 202001
  2. HYDREA [Suspect]
     Active Substance: HYDROXYUREA
     Indication: PRODUCT USED FOR UNKNOWN INDICATION
     Dosage: UNK
     Route: 065
     Dates: start: 201811, end: 201905
  3. HYDREA [Suspect]
     Active Substance: HYDROXYUREA
     Dosage: UNK

REACTIONS (7)
  - Disease progression [Unknown]
  - Anaemia [Unknown]
  - Essential thrombocythaemia [Unknown]
  - Off label use [Unknown]
  - Haemoglobin decreased [Unknown]
  - Platelet count increased [Not Recovered/Not Resolved]
  - Blood iron decreased [Unknown]
